FAERS Safety Report 25539455 (Version 1)
Quarter: 2025Q3

REPORT INFORMATION
  Report Type: Other
  Country: EU (occurrence: EU)
  Receive Date: 20250710
  Receipt Date: 20250710
  Transmission Date: 20251020
  Serious: Yes (Other)
  Sender: INCYTE
  Company Number: None

PATIENT
  Age: 56 Year

DRUGS (4)
  1. RUXOLITINIB [Suspect]
     Active Substance: RUXOLITINIB
     Indication: Polycythaemia vera
     Dosage: 1 COMPRIM? MATIN ET SOIR (COMPRIM?)
  2. ASPIRIN [Concomitant]
     Active Substance: ASPIRIN
     Indication: Polycythaemia vera
     Dosage: 1 COMPRIM? PAR JOUR
  3. IBUPROFEN [Concomitant]
     Active Substance: IBUPROFEN
     Indication: Migraine
  4. INDOMETHACIN [Concomitant]
     Active Substance: INDOMETHACIN
     Indication: Migraine

REACTIONS (1)
  - Mixed liver injury [Recovering/Resolving]
